FAERS Safety Report 17747904 (Version 1)
Quarter: 2020Q2

REPORT INFORMATION
  Report Type: Spontaneous
  Country: US (occurrence: US)
  Receive Date: 20200505
  Receipt Date: 20200505
  Transmission Date: 20200714
  Serious: No
  Sender: FDA-Public Use
  Company Number: US-TEVA-2020-US-1231222

PATIENT
  Age: 21 Year
  Sex: Female

DRUGS (1)
  1. FAMOTIDINE. [Suspect]
     Active Substance: FAMOTIDINE
     Indication: OESOPHAGITIS
     Dosage: 80 MILLIGRAM DAILY;
     Route: 065
     Dates: start: 202004

REACTIONS (5)
  - Product dose omission [Unknown]
  - Nausea [Recovering/Resolving]
  - Crying [Recovered/Resolved]
  - Vomiting [Recovering/Resolving]
  - Pain [Recovering/Resolving]

NARRATIVE: CASE EVENT DATE: 202004
